FAERS Safety Report 6871810-6 (Version None)
Quarter: 2010Q3

REPORT INFORMATION
  Report Type: 
  Country: None (occurrence: None)
  Receive Date: 20100723
  Receipt Date: 20100716
  Transmission Date: 20110219
  Serious: Yes (Life-Threatening)
  Sender: FDA-Public Use
  Company Number: B0665206A

PATIENT
  Sex: Female

DRUGS (6)
  1. ALKERAN [Suspect]
     Indication: CHEMOTHERAPY
     Route: 042
     Dates: start: 20100609, end: 20100609
  2. BUSULFAN [Suspect]
     Indication: CHEMOTHERAPY
     Route: 042
     Dates: start: 20100605, end: 20100608
  3. TEGRETOL [Concomitant]
     Dosage: 100MG PER DAY
     Dates: start: 20100605, end: 20100608
  4. URSODIOL [Concomitant]
     Dosage: 150MG PER DAY
     Dates: start: 20100605, end: 20100608
  5. ZOFRAN [Concomitant]
     Dosage: 6MG PER DAY
  6. SOLDESAM [Concomitant]
     Dosage: 4MG PER DAY
     Dates: start: 20100605, end: 20100608

REACTIONS (1)
  - VENOOCCLUSIVE DISEASE [None]
